FAERS Safety Report 12930565 (Version 2)
Quarter: 2017Q1

REPORT INFORMATION
  Report Type: Spontaneous
  Country: JP (occurrence: JP)
  Receive Date: 20161110
  Receipt Date: 20170221
  Transmission Date: 20170428
  Serious: Yes (Hospitalization)
  Sender: FDA-Public Use
  Company Number: JP-JNJFOC-20161107397

PATIENT
  Age: 82 Year
  Sex: Male
  Weight: 60.7 kg

DRUGS (10)
  1. GLUCOBAY [Concomitant]
     Active Substance: ACARBOSE
     Route: 048
  2. FLUITRAN [Concomitant]
     Active Substance: TRICHLORMETHIAZIDE
     Route: 048
  3. XARELTO [Suspect]
     Active Substance: RIVAROXABAN
     Indication: ATRIAL FIBRILLATION
     Route: 048
     Dates: start: 20131003, end: 20161019
  4. VILDAGLIPTIN [Concomitant]
     Active Substance: VILDAGLIPTIN
     Route: 048
  5. EUGLUCON [Concomitant]
     Active Substance: GLYBURIDE
     Route: 048
  6. HALCION [Concomitant]
     Active Substance: TRIAZOLAM
     Route: 048
  7. METFORMIN HYDROCHLORIDE. [Concomitant]
     Active Substance: METFORMIN HYDROCHLORIDE
     Route: 048
  8. XARELTO [Suspect]
     Active Substance: RIVAROXABAN
     Indication: ATRIOVENTRICULAR BLOCK
     Route: 048
     Dates: start: 20131003, end: 20161019
  9. HERBESSER [Concomitant]
     Active Substance: DILTIAZEM HYDROCHLORIDE
     Route: 048
  10. ALDACTONE A [Concomitant]
     Active Substance: SPIRONOLACTONE
     Route: 048

REACTIONS (1)
  - Embolic stroke [Recovered/Resolved with Sequelae]

NARRATIVE: CASE EVENT DATE: 20161018
